FAERS Safety Report 19273956 (Version 1)
Quarter: 2021Q2

REPORT INFORMATION
  Report Type: Spontaneous
  Country: US (occurrence: US)
  Receive Date: 20210519
  Receipt Date: 20210519
  Transmission Date: 20210717
  Serious: Yes (Hospitalization)
  Sender: FDA-Public Use
  Company Number: US-MYLANLABS-2021M1028118

PATIENT
  Age: 62 Year
  Sex: Male
  Weight: 127 kg

DRUGS (13)
  1. DEXAMETHASONE. [Interacting]
     Active Substance: DEXAMETHASONE
     Indication: COVID-19 PNEUMONIA
     Dosage: 6 MILLIGRAM, QD,DAY 4?7
     Route: 048
  2. REMDESIVIR. [Interacting]
     Active Substance: REMDESIVIR
     Indication: COVID-19 PNEUMONIA
     Dosage: 200 MILLIGRAM, QD,ONE DOSE
     Route: 042
  3. GLUCOSE LIQUID [Concomitant]
     Indication: HYPOGLYCAEMIA
     Dosage: 15 GRAM
     Route: 048
  4. LIDOCAINE. [Concomitant]
     Active Substance: LIDOCAINE
     Indication: ARTHRALGIA
     Dosage: SMALL AMOUNT TOPICALLY AS NEEDED FOR RIGHT HIP PAIN
     Route: 061
  5. REMDESIVIR. [Interacting]
     Active Substance: REMDESIVIR
     Dosage: 100 MILLIGRAM, QD,DAY 3?6
     Route: 042
  6. WARFARIN [Suspect]
     Active Substance: WARFARIN
     Indication: AORTIC ANEURYSM
     Dosage: 11.25 MILLIGRAM, QD
     Route: 065
  7. DEXTROSE. [Concomitant]
     Active Substance: DEXTROSE
     Indication: HYPOGLYCAEMIA
     Dosage: 25 MILLILITER
     Route: 042
  8. ALBUTEROL                          /00139501/ [Concomitant]
     Active Substance: ALBUTEROL
     Indication: WHEEZING
     Dosage: 90 MICROGRAM,TWO PUFFS EVERY 6 HOURS AND EVERY 2 HOURS
  9. BENZONATATE. [Concomitant]
     Active Substance: BENZONATATE
     Indication: COUGH
     Dosage: 100 MILLIGRAM, Q8H
     Route: 048
  10. CARVEDILOL. [Concomitant]
     Active Substance: CARVEDILOL
     Indication: PRODUCT USED FOR UNKNOWN INDICATION
     Dosage: 25 MILLIGRAM
     Route: 048
  11. ACETAMINOPHEN. [Concomitant]
     Active Substance: ACETAMINOPHEN
     Indication: PYREXIA
     Dosage: 650 MILLIGRAM, Q8H
     Route: 048
  12. GLUCAGON. [Concomitant]
     Active Substance: GLUCAGON
     Indication: HYPOGLYCAEMIA
     Dosage: 1 MILLILITER
     Route: 030
  13. LOPERAMIDE [Concomitant]
     Active Substance: LOPERAMIDE
     Indication: DIARRHOEA
     Dosage: 2 MILLIGRAM, Q4H
     Route: 048

REACTIONS (3)
  - Off label use [Unknown]
  - Drug interaction [Recovered/Resolved]
  - International normalised ratio increased [Recovered/Resolved]
